FAERS Safety Report 4423508-1 (Version None)
Quarter: 2004Q3

REPORT INFORMATION
  Report Type: 
  Country: None (occurrence: None)
  Receive Date: 20040806
  Receipt Date: 20040720
  Transmission Date: 20050211
  Serious: Yes (Hospitalization)
  Sender: FDA-Public Use
  Company Number: EWC040740020

PATIENT
  Age: 68 Year
  Sex: Male
  Weight: 85 kg

DRUGS (11)
  1. PERMAX [Suspect]
     Indication: RESTLESS LEGS SYNDROME
     Dosage: 1 MG/4
     Dates: start: 19980101, end: 20040623
  2. EFFEXOR [Concomitant]
  3. RIVOTRIL (CLONAZEPAM) [Concomitant]
  4. BACLOFEN [Concomitant]
  5. SINALFA (TERAZOSIN HYDROCHLORIDE) [Concomitant]
  6. HJERTEMAGNYL [Concomitant]
  7. MAGNESIA (MAGNESIUM OXIDE) [Concomitant]
  8. HERBAL EXTRACTS NOS [Concomitant]
  9. TEGRETOL [Concomitant]
  10. SERETIDE [Concomitant]
  11. DOLOL (TRAMADOL) [Concomitant]

REACTIONS (7)
  - ANAEMIA [None]
  - CEREBRAL DISORDER [None]
  - HYDRONEPHROSIS [None]
  - LYMPHOEDEMA [None]
  - OEDEMA PERIPHERAL [None]
  - PULMONARY FIBROSIS [None]
  - RETROPERITONEAL FIBROSIS [None]
